FAERS Safety Report 11678245 (Version 1)
Quarter: 2015Q4

REPORT INFORMATION
  Report Type: Spontaneous
  Country: US (occurrence: US)
  Receive Date: 20151028
  Receipt Date: 20151028
  Transmission Date: 20160304
  Serious: Yes (Hospitalization)
  Sender: FDA-Public Use
  Company Number: PHHY2015US132494

PATIENT
  Sex: Male

DRUGS (1)
  1. VOTRIENT [Suspect]
     Active Substance: PAZOPANIB HYDROCHLORIDE
     Indication: RENAL NEOPLASM
     Dosage: 800 MG, QD, 4 TABELTS OF 200 MG QD 1 HOUR BEFORE OR 2 HRS AFTER MEAL
     Route: 065
     Dates: start: 20150421

REACTIONS (3)
  - Anaemia [Unknown]
  - Epigastric discomfort [Unknown]
  - Nausea [Unknown]
